FAERS Safety Report 24813987 (Version 1)
Quarter: 2025Q1

REPORT INFORMATION
  Report Type: Report from Study
  Country: KW (occurrence: KW)
  Receive Date: 20250107
  Receipt Date: 20250107
  Transmission Date: 20250416
  Serious: Yes (Other)
  Sender: UCB
  Company Number: KW-UCBSA-2025000668

PATIENT
  Age: 26 Year
  Sex: Female

DRUGS (1)
  1. CERTOLIZUMAB PEGOL [Suspect]
     Active Substance: CERTOLIZUMAB PEGOL
     Indication: Rheumatoid arthritis
     Dosage: 200 MILLIGRAM, EV 2 WEEKS(QOW)
     Route: 058
     Dates: start: 20230417

REACTIONS (2)
  - Gallbladder operation [Recovering/Resolving]
  - Gallbladder disorder [Unknown]

NARRATIVE: CASE EVENT DATE: 20241226
